FAERS Safety Report 5279462-6 (Version None)
Quarter: 2007Q1

REPORT INFORMATION
  Report Type: 
  Country: None (occurrence: None)
  Receive Date: 20070328
  Receipt Date: 20070317
  Transmission Date: 20070707
  Serious: Yes (Other)
  Sender: FDA-Public Use
  Company Number: US-PFIZER INC-2007021063

PATIENT
  Sex: Male
  Weight: 99.8 kg

DRUGS (2)
  1. CHANTIX [Suspect]
     Indication: EX-SMOKER
     Dosage: DAILY DOSE:.5MG
  2. VITAMINS [Concomitant]

REACTIONS (3)
  - JOB DISSATISFACTION [None]
  - MAJOR DEPRESSION [None]
  - SUICIDAL IDEATION [None]
